FAERS Safety Report 26064968 (Version 1)
Quarter: 2025Q4

REPORT INFORMATION
  Report Type: Spontaneous
  Country: CN (occurrence: CN)
  Receive Date: 20251119
  Receipt Date: 20251119
  Transmission Date: 20260117
  Serious: Yes (Life-Threatening, Hospitalization)
  Sender: PFIZER
  Company Number: CN-PFIZER INC-PV202500134564

PATIENT
  Age: 16 Year
  Sex: Female

DRUGS (7)
  1. ZYVOX [Suspect]
     Active Substance: LINEZOLID
     Indication: Cerebral haemorrhage
     Dosage: 0.6 G, 2X/DAY
     Route: 041
     Dates: start: 20251109, end: 20251111
  2. ZYVOX [Suspect]
     Active Substance: LINEZOLID
     Indication: Anti-infective therapy
  3. KABIVEN [Suspect]
     Active Substance: ALANINE\ARGININE\ASPARTIC ACID\CALCIUM CHLORIDE\DEXTROSE MONOHYDRATE\GLUTAMIC ACID\GLYCINE\HISTIDINE
     Indication: Cerebral haemorrhage
     Dosage: 1026 ML, 1X/DAY
     Route: 041
     Dates: start: 20251102, end: 20251105
  4. KABIVEN [Suspect]
     Active Substance: ALANINE\ARGININE\ASPARTIC ACID\CALCIUM CHLORIDE\DEXTROSE MONOHYDRATE\GLUTAMIC ACID\GLYCINE\HISTIDINE
     Indication: Nutritional supplementation
  5. VALPROATE SODIUM [Suspect]
     Active Substance: VALPROATE SODIUM
     Indication: Epilepsy
     Dosage: 0.2 G, 2X/DAY
     Route: 048
     Dates: start: 20251107, end: 20251110
  6. VALPROATE SODIUM [Suspect]
     Active Substance: VALPROATE SODIUM
     Indication: Cerebral haemorrhage
  7. ALBUMIN HUMAN [Suspect]
     Active Substance: ALBUMIN HUMAN
     Indication: Reduction of increased intracranial pressure
     Dosage: 20 G, 2X/DAY
     Route: 041
     Dates: start: 20251101, end: 20251110

REACTIONS (2)
  - Dermatitis allergic [Unknown]
  - Drug eruption [Unknown]

NARRATIVE: CASE EVENT DATE: 20251110
